FAERS Safety Report 15350679 (Version 3)
Quarter: 2018Q4

REPORT INFORMATION
  Report Type: Spontaneous
  Country: US (occurrence: US)
  Receive Date: 20180905
  Receipt Date: 20180924
  Transmission Date: 20190204
  Serious: Yes (Other)
  Sender: FDA-Public Use
  Company Number: US-AUROBINDO-AUR-APU-2018-043928

PATIENT
  Age: 85 Year
  Sex: Female

DRUGS (3)
  1. TRIMETHOPRIM+SULFAMETHOXAZOLE TABLET [Suspect]
     Active Substance: SULFAMETHOXAZOLE\TRIMETHOPRIM
     Indication: CELLULITIS
     Dosage: 800 MILLIGRAM, TWO TIMES A DAY
     Dates: start: 20180520
  2. CEPHALEX /00145501/ [Suspect]
     Active Substance: CEPHALEXIN
     Indication: ARTHROPOD BITE
     Dosage: 500 MILLIGRAM
     Dates: start: 20180519
  3. NYSTATIN. [Suspect]
     Active Substance: NYSTATIN
     Indication: CANDIDA INFECTION
     Dosage: UNK
     Dates: start: 20180618

REACTIONS (3)
  - Pancreatitis [Not Recovered/Not Resolved]
  - Candida infection [Not Recovered/Not Resolved]
  - Ageusia [Recovered/Resolved]

NARRATIVE: CASE EVENT DATE: 2018
